FAERS Safety Report 25239098 (Version 2)
Quarter: 2025Q3

REPORT INFORMATION
  Report Type: Report from Study
  Country: US (occurrence: US)
  Receive Date: 20250425
  Receipt Date: 20250924
  Transmission Date: 20251021
  Serious: No
  Sender: AGIOS PHARMACEUTICALS
  Company Number: US-AGIOS-2504US04220

PATIENT
  Sex: Female
  Weight: 40.816 kg

DRUGS (1)
  1. MITAPIVAT [Suspect]
     Active Substance: MITAPIVAT
     Indication: Thalassaemia beta
     Route: 048
     Dates: start: 20250318

REACTIONS (8)
  - Abdominal pain upper [Unknown]
  - Hypophagia [Unknown]
  - Fatigue [Unknown]
  - Psychiatric symptom [Unknown]
  - Crying [Unknown]
  - Diarrhoea [Unknown]
  - Off label use [Unknown]
  - Somnolence [Unknown]
